FAERS Safety Report 9708002 (Version 1)
Quarter: 2013Q4

REPORT INFORMATION
  Report Type: Spontaneous
  Country: US (occurrence: US)
  Receive Date: 20131125
  Receipt Date: 20131125
  Transmission Date: 20140711
  Serious: No
  Sender: FDA-Public Use
  Company Number: US-009507513-1311USA010498

PATIENT
  Sex: Female

DRUGS (1)
  1. OXYTROL FOR WOMEN [Suspect]
     Indication: HYPERTONIC BLADDER
     Dosage: 1 DF, QD
     Route: 062
     Dates: start: 20131104

REACTIONS (3)
  - Urine odour abnormal [Not Recovered/Not Resolved]
  - Urine output increased [Not Recovered/Not Resolved]
  - Inappropriate schedule of drug administration [Unknown]
